FAERS Safety Report 6917829-8 (Version None)
Quarter: 2010Q3

REPORT INFORMATION
  Report Type: 
  Country: None (occurrence: None)
  Receive Date: 20100810
  Receipt Date: 20090326
  Transmission Date: 20110219
  Serious: No
  Sender: FDA-Public Use
  Company Number: US-PFIZER INC-2009192288

PATIENT
  Sex: Female
  Weight: 86.2 kg

DRUGS (2)
  1. TOVIAZ [Suspect]
     Indication: MICTURITION URGENCY
     Dosage: UNK MG, 1X/DAY
     Dates: start: 20090322
  2. TOVIAZ [Suspect]
     Indication: STRESS URINARY INCONTINENCE

REACTIONS (4)
  - DIARRHOEA [None]
  - DRY MOUTH [None]
  - EYE IRRITATION [None]
  - STRABISMUS [None]
